FAERS Safety Report 9252206 (Version 1)
Quarter: 2013Q1

REPORT INFORMATION
  Report Type: Spontaneous
  Country: US (occurrence: None)
  Receive Date: 20130305
  Receipt Date: 20130305
  Transmission Date: 20140127
  Serious: Yes (Disabling)
  Sender: FDA-Public Use
  Company Number: 163-21880-12083396

PATIENT
  Age: 59 Year
  Sex: Male

DRUGS (1)
  1. REVLIMID [Suspect]
     Indication: LYMPHOMA
     Dosage: 1 IN 1 D
     Route: 048
     Dates: start: 201202

REACTIONS (5)
  - Asthenia [None]
  - Decreased appetite [None]
  - Full blood count decreased [None]
  - Fatigue [None]
  - Dizziness [None]
